FAERS Safety Report 23017632 (Version 1)
Quarter: 2023Q4

REPORT INFORMATION
  Report Type: Spontaneous
  Country: US (occurrence: US)
  Receive Date: 20231003
  Receipt Date: 20231003
  Transmission Date: 20240110
  Serious: Yes (Hospitalization, Other)
  Sender: FDA-Public Use
  Company Number: US-NOVITIUMPHARMA-2023USNVP01705

PATIENT
  Age: 75 Year
  Sex: Male

DRUGS (2)
  1. HYDROXYCHLOROQUINE SULFATE [Suspect]
     Active Substance: HYDROXYCHLOROQUINE SULFATE
     Indication: Product used for unknown indication
     Dosage: 80-120MG
  2. FENBENDAZOLE [Concomitant]
     Active Substance: FENBENDAZOLE
     Indication: Prostate cancer metastatic

REACTIONS (6)
  - Accidental exposure to product [Unknown]
  - Tachyarrhythmia [Unknown]
  - Seizure like phenomena [Unknown]
  - Electrocardiogram QT prolonged [Recovering/Resolving]
  - Torsade de pointes [Recovering/Resolving]
  - Toxicity to various agents [Unknown]
